FAERS Safety Report 5206949-4 (Version None)
Quarter: 2007Q1

REPORT INFORMATION
  Report Type: 
  Country: None (occurrence: None)
  Receive Date: 20070112
  Receipt Date: 20070108
  Transmission Date: 20070707
  Serious: Yes (Death, Other)
  Sender: FDA-Public Use
  Company Number: US-JNJFOC-20060801065

PATIENT
  Age: 69 Year
  Sex: Female
  Weight: 54.43 kg

DRUGS (9)
  1. REMICADE [Suspect]
     Indication: PSORIATIC ARTHROPATHY
     Route: 042
  2. REMICADE [Suspect]
     Indication: RHEUMATOID ARTHRITIS
     Dosage: FIVE INFUSIONS ON UNSPECIFIED DATES.
     Route: 042
  3. 5-ASA [Concomitant]
     Indication: PSORIATIC ARTHROPATHY
  4. 5-ASA [Concomitant]
     Indication: RHEUMATOID ARTHRITIS
  5. MTX [Concomitant]
     Indication: PSORIATIC ARTHROPATHY
  6. MTX [Concomitant]
     Indication: RHEUMATOID ARTHRITIS
  7. CELEBREX [Concomitant]
     Indication: PAIN
  8. STEROIDS [Concomitant]
     Indication: PSORIATIC ARTHROPATHY
  9. STEROIDS [Concomitant]
     Indication: RHEUMATOID ARTHRITIS

REACTIONS (4)
  - METASTASES TO ABDOMINAL CAVITY [None]
  - METASTASES TO KIDNEY [None]
  - METASTASES TO LIVER [None]
  - SINUS CANCER METASTATIC [None]
